FAERS Safety Report 16824251 (Version 4)
Quarter: 2020Q3

REPORT INFORMATION
  Report Type: Other
  Country: CA (occurrence: CA)
  Receive Date: 20190918
  Receipt Date: 20200720
  Transmission Date: 20201102
  Serious: Yes (Other)
  Sender: FDA-Public Use
  Company Number: CA-BECTON DICKINSON-2019BDN00325

PATIENT
  Age: 23 Year
  Sex: Female

DRUGS (5)
  1. REMODULIN [Suspect]
     Active Substance: TREPROSTINIL
     Indication: PULMONARY ARTERIAL HYPERTENSION
     Dosage: DRIP
     Route: 042
  2. CHLORAPREP [Suspect]
     Active Substance: CHLORHEXIDINE GLUCONATE\ISOPROPYL ALCOHOL
     Dosage: UNK
     Route: 061
  3. TREPROSTINIL SODIUM [Suspect]
     Active Substance: TREPROSTINIL SODIUM
     Indication: PULMONARY ARTERIAL HYPERTENSION
     Dosage: DRIP
     Route: 042
  4. CHLORAPREP [Suspect]
     Active Substance: CHLORHEXIDINE GLUCONATE\ISOPROPYL ALCOHOL
     Dosage: UNK
     Route: 048
  5. CHLORHEXIDINE [Suspect]
     Active Substance: CHLORHEXIDINE

REACTIONS (6)
  - Device dislocation [Unknown]
  - Injection site irritation [Unknown]
  - Injection site erythema [Unknown]
  - Vascular device infection [Unknown]
  - Haemorrhage [Unknown]
  - Dizziness [Unknown]
